FAERS Safety Report 7768729-5 (Version None)
Quarter: 2011Q3

REPORT INFORMATION
  Report Type: 
  Country: None (occurrence: None)
  Receive Date: 20110922
  Receipt Date: 20110418
  Transmission Date: 20111222
  Serious: No
  Sender: FDA-Public Use
  Company Number: US-ASTRAZENECA-2011SE22023

PATIENT
  Age: 72 Year
  Sex: Female
  Weight: 77.1 kg

DRUGS (14)
  1. SEROQUEL [Suspect]
     Indication: DEPRESSION
     Route: 048
  2. TRAZODONE HYDROCHLORIDE [Concomitant]
  3. LEVOTHYROXINE SODIUM [Concomitant]
  4. SEROQUEL [Suspect]
     Route: 048
     Dates: start: 20110211, end: 20110413
  5. SEROQUEL [Suspect]
     Indication: SLEEP DISORDER
     Route: 048
  6. SEROQUEL [Suspect]
     Route: 048
     Dates: start: 20080101, end: 20110201
  7. SEROQUEL [Suspect]
     Route: 048
     Dates: start: 20110201, end: 20110212
  8. SEROQUEL [Suspect]
     Route: 048
     Dates: start: 20080101, end: 20110201
  9. SEROQUEL [Suspect]
     Route: 048
     Dates: start: 20110211, end: 20110413
  10. LIPITOR [Concomitant]
  11. NORVASC [Concomitant]
  12. ZETIA [Concomitant]
  13. SEROQUEL [Suspect]
     Route: 048
     Dates: start: 20110201, end: 20110212
  14. NEXIUM [Concomitant]

REACTIONS (8)
  - PAIN [None]
  - DRY SKIN [None]
  - DRY MOUTH [None]
  - DRUG DOSE OMISSION [None]
  - OFF LABEL USE [None]
  - GINGIVAL BLEEDING [None]
  - URINARY INCONTINENCE [None]
  - DRUG INEFFECTIVE FOR UNAPPROVED INDICATION [None]
